FAERS Safety Report 8211118-X (Version None)
Quarter: 2012Q1

REPORT INFORMATION
  Report Type: 
  Country: None (occurrence: None)
  Receive Date: 20120315
  Receipt Date: 20120313
  Transmission Date: 20120608
  Serious: Yes (Hospitalization)
  Sender: FDA-Public Use
  Company Number: PHHO2011JP17005

PATIENT
  Sex: Male
  Weight: 59 kg

DRUGS (15)
  1. BLINDED PLACEBO [Suspect]
     Indication: CHRONIC OBSTRUCTIVE PULMONARY DISEASE
     Dosage: DOUBLE BLINDED
     Dates: start: 20110728, end: 20111002
  2. BLINDED QAB149 [Suspect]
     Indication: CHRONIC OBSTRUCTIVE PULMONARY DISEASE
     Dosage: DOUBLE BLINDED
     Dates: start: 20110728, end: 20111002
  3. BLINDED QVA149 [Suspect]
     Indication: CHRONIC OBSTRUCTIVE PULMONARY DISEASE
     Dosage: DOUBLE BLINDED
     Dates: start: 20110728, end: 20111002
  4. ALLOPURINOL [Concomitant]
     Indication: HYPERURICAEMIA
     Dosage: 100 MG, UNK
     Route: 048
     Dates: start: 20100827
  5. IRBESARTAN [Concomitant]
  6. BLINDED NVA237 [Suspect]
     Dosage: DOUBLE BLINDED
     Dates: start: 20111102, end: 20120124
  7. BLINDED NO TREATMENT RECEIVED [Suspect]
     Indication: CHRONIC OBSTRUCTIVE PULMONARY DISEASE
     Dosage: DOUBLE BLINDED
     Dates: start: 20110728, end: 20111002
  8. BLINDED PLACEBO [Suspect]
     Dosage: DOUBLE BLINDED
     Dates: start: 20111102, end: 20120124
  9. BLINDED NVA237 [Suspect]
     Indication: CHRONIC OBSTRUCTIVE PULMONARY DISEASE
     Dosage: DOUBLE BLINDED
     Dates: start: 20110728, end: 20111002
  10. BLINDED NO TREATMENT RECEIVED [Suspect]
     Dosage: DOUBLE BLINDED
     Dates: start: 20111102, end: 20120124
  11. BLINDED TIOTROPIUM [Suspect]
     Indication: CHRONIC OBSTRUCTIVE PULMONARY DISEASE
     Dosage: DOUBLE BLINDED
     Dates: start: 20110728, end: 20111002
  12. BLINDED QVA149 [Suspect]
     Dosage: DOUBLE BLINDED
     Dates: start: 20111102, end: 20120124
  13. NORVASC [Concomitant]
     Indication: HYPERTENSION
     Dosage: 2.5 MG, UNK
     Route: 048
     Dates: start: 20100629
  14. BLINDED QAB149 [Suspect]
     Dosage: DOUBLE BLINDED
     Dates: start: 20111102, end: 20120124
  15. BLINDED TIOTROPIUM [Suspect]
     Dosage: DOUBLE BLINDED
     Dates: start: 20111102, end: 20120124

REACTIONS (2)
  - SUBARACHNOID HAEMORRHAGE [None]
  - LUMBAR VERTEBRAL FRACTURE [None]
